FAERS Safety Report 11212576 (Version 1)
Quarter: 2015Q2

REPORT INFORMATION
  Report Type: Spontaneous
  Country: CA (occurrence: CA)
  Receive Date: 20150623
  Receipt Date: 20150623
  Transmission Date: 20150821
  Serious: Yes (Other)
  Sender: FDA-Public Use
  Company Number: CA-TEVA-571763ACC

PATIENT
  Age: 47 Year
  Sex: Female
  Weight: 52.21 kg

DRUGS (1)
  1. TEVA-RABEPRAZOLE EC [Suspect]
     Active Substance: RABEPRAZOLE
     Indication: PRODUCT USED FOR UNKNOWN INDICATION
     Dosage: 20 MILLIGRAM DAILY;
     Route: 065

REACTIONS (4)
  - Paraesthesia [Recovered/Resolved]
  - Hypoaesthesia oral [Recovered/Resolved]
  - Irritable bowel syndrome [Recovered/Resolved]
  - Hypoaesthesia [Recovered/Resolved]
